FAERS Safety Report 11712974 (Version 2)
Quarter: 2017Q2

REPORT INFORMATION
  Report Type: Spontaneous
  Country: US (occurrence: US)
  Receive Date: 20151108
  Receipt Date: 20170529
  Transmission Date: 20170829
  Serious: No
  Sender: FDA-Public Use
  Company Number: US-ASTRAZENECA-2015SF05443

PATIENT
  Age: 49 Year
  Sex: Female

DRUGS (4)
  1. ZOMIG [Suspect]
     Active Substance: ZOLMITRIPTAN
     Indication: MIGRAINE
     Route: 048
  2. ZOMIG [Suspect]
     Active Substance: ZOLMITRIPTAN
     Indication: MIGRAINE
     Dosage: 5.0MG UNKNOWN
     Route: 048
     Dates: start: 2009
  3. ZOMIG [Suspect]
     Active Substance: ZOLMITRIPTAN
     Indication: MENTAL DISORDER
     Dosage: 5.0MG UNKNOWN
     Route: 048
     Dates: start: 2009
  4. ZOMIG [Suspect]
     Active Substance: ZOLMITRIPTAN
     Indication: MENTAL DISORDER
     Route: 048

REACTIONS (4)
  - Memory impairment [Unknown]
  - Back injury [Unknown]
  - Spinal pain [Unknown]
  - Depression [Unknown]

NARRATIVE: CASE EVENT DATE: 2013
